FAERS Safety Report 15133796 (Version 1)
Quarter: 2018Q3

REPORT INFORMATION
  Report Type: Spontaneous
  Country: US (occurrence: US)
  Receive Date: 20180712
  Receipt Date: 20180712
  Transmission Date: 20181010
  Serious: Yes (Other)
  Sender: FDA-Public Use
  Company Number: US-ELI_LILLY_AND_COMPANY-US201807001252

PATIENT
  Sex: Female

DRUGS (2)
  1. THYROXINE [Concomitant]
     Active Substance: LEVOTHYROXINE
     Indication: THYROID DISORDER
     Dosage: 0.75 MG, DAILY
     Dates: start: 20171001
  2. HUMATROPE [Suspect]
     Active Substance: SOMATROPIN
     Indication: GROWTH HORMONE DEFICIENCY
     Dosage: 1.70 UG, UNKNOWN
     Route: 058
     Dates: start: 20171227

REACTIONS (6)
  - Injection site urticaria [Recovered/Resolved]
  - Crohn^s disease [Unknown]
  - Crying [Unknown]
  - Injection site haemorrhage [Recovered/Resolved]
  - Colitis [Unknown]
  - Injection site pain [Recovering/Resolving]
